FAERS Safety Report 5533065-4 (Version None)
Quarter: 2007Q4

REPORT INFORMATION
  Report Type: 
  Country: None (occurrence: None)
  Receive Date: 20071204
  Receipt Date: 20071204
  Transmission Date: 20080405
  Serious: Yes (Other)
  Sender: FDA-Public Use
  Company Number: A0697224A

PATIENT
  Age: 52 Year
  Sex: Male

DRUGS (7)
  1. ALLI [Suspect]
     Route: 048
     Dates: start: 20070929
  2. CAPTOPRIL [Concomitant]
  3. TRIAMTERENE AND HYDROCHLOROTHIAZIDE [Concomitant]
  4. GINKGO-BILOBA [Concomitant]
  5. GLUCOSAMINE CHONDRITIN [Concomitant]
  6. CENTRUM MULTI-VITAMIN [Concomitant]
  7. ASPIRIN [Concomitant]

REACTIONS (1)
  - RECTAL HAEMORRHAGE [None]
